FAERS Safety Report 17856795 (Version 1)
Quarter: 2020Q2

REPORT INFORMATION
  Report Type: Report from Study
  Country: US (occurrence: US)
  Receive Date: 20200603
  Receipt Date: 20200603
  Transmission Date: 20200714
  Serious: Yes (Hospitalization)
  Sender: FDA-Public Use
  Company Number: US-VERASTEM-2018-00011

PATIENT

DRUGS (14)
  1. OMEPRAZOLE. [Concomitant]
     Active Substance: OMEPRAZOLE
     Indication: PROPHYLAXIS
     Dosage: 20 MG, QD
     Route: 048
     Dates: start: 20170916
  2. PREDNISONE. [Concomitant]
     Active Substance: PREDNISONE
     Indication: PROPHYLAXIS
     Dosage: 40 MG, QD
     Route: 048
     Dates: start: 20180125, end: 20180204
  3. PROCHLORPERAZINE. [Concomitant]
     Active Substance: PROCHLORPERAZINE
     Indication: PROPHYLAXIS OF NAUSEA AND VOMITING
     Dosage: 10 MG, Q6HR PRN
     Route: 048
     Dates: start: 20170907
  4. TYLENOL [Concomitant]
     Active Substance: ACETAMINOPHEN
     Indication: PYREXIA
     Dosage: 325 MG, PRN
     Route: 048
     Dates: start: 20171222
  5. IPI-145 [Suspect]
     Active Substance: DUVELISIB
     Indication: CUTANEOUS T-CELL LYMPHOMA
     Dosage: 75 MG, BID
     Route: 048
     Dates: start: 20171102, end: 20180125
  6. MAGNESIUM OXIDE. [Concomitant]
     Active Substance: MAGNESIUM OXIDE
     Indication: SUPPLEMENTATION THERAPY
     Dosage: 400 MG, BID
     Route: 048
     Dates: start: 20171002
  7. ACYCLOVIR. [Concomitant]
     Active Substance: ACYCLOVIR
     Indication: ANTIVIRAL PROPHYLAXIS
     Dosage: 400 MG, BID
     Route: 048
     Dates: start: 20170915
  8. BENADRYL [Concomitant]
     Active Substance: DIPHENHYDRAMINE HYDROCHLORIDE
     Indication: PRURITUS
     Dosage: 25 MG, QD PRN
     Route: 048
     Dates: start: 20171102
  9. CLOBETASOL [Concomitant]
     Active Substance: CLOBETASOL
     Indication: PRURITUS
     Dosage: 0.05 %, BID
     Route: 061
     Dates: start: 2016
  10. EPINEPHRINE. [Concomitant]
     Active Substance: EPINEPHRINE
     Indication: ANAPHYLAXIS PROPHYLAXIS
     Dosage: 0.3 MG, PRN
     Route: 058
     Dates: start: 20161121
  11. ROMIDEPSIN. [Suspect]
     Active Substance: ROMIDEPSIN
     Indication: CUTANEOUS T-CELL LYMPHOMA
     Dosage: 10 MG/M2, DAYS 1,8,15
     Route: 042
     Dates: start: 20171102, end: 20180101
  12. SILVADENE [Concomitant]
     Active Substance: SILVER SULFADIAZINE
     Indication: SKIN LESION
     Dosage: 1 %, BID
     Route: 061
     Dates: start: 20160411
  13. CLOBETASOL [Concomitant]
     Active Substance: CLOBETASOL
     Indication: SKIN LESION
  14. BACTRIM [Concomitant]
     Active Substance: SULFAMETHOXAZOLE\TRIMETHOPRIM
     Indication: INFECTION PROPHYLAXIS
     Dosage: 800 MG, TIW
     Route: 048
     Dates: start: 20171030

REACTIONS (3)
  - Stomatitis [Recovered/Resolved]
  - Dehydration [Recovered/Resolved]
  - Hyponatraemia [Recovered/Resolved]

NARRATIVE: CASE EVENT DATE: 20180129
